FAERS Safety Report 18668505 (Version 3)
Quarter: 2021Q2

REPORT INFORMATION
  Report Type: Spontaneous
  Country: JP (occurrence: JP)
  Receive Date: 20201228
  Receipt Date: 20210419
  Transmission Date: 20210717
  Serious: Yes (Life-Threatening, Hospitalization, Other)
  Sender: FDA-Public Use
  Company Number: JP-009507513-2011JPN004023J

PATIENT
  Age: 72 Year
  Sex: Male
  Weight: 53 kg

DRUGS (7)
  1. PEMETREXED DISODIUM [Concomitant]
     Active Substance: PEMETREXED DISODIUM
     Indication: LUNG ADENOCARCINOMA STAGE IV
     Dosage: 700 MILLIGRAM, A TIME/3?4 WEEKS
     Route: 041
     Dates: start: 20190731, end: 20191023
  2. PEMETREXED DISODIUM [Concomitant]
     Active Substance: PEMETREXED DISODIUM
     Dosage: 700 MILLIGRAM, A TIME/3?4 WEEKS
     Route: 041
     Dates: start: 20200313, end: 20200626
  3. CISPLATIN. [Concomitant]
     Active Substance: CISPLATIN
     Indication: LUNG ADENOCARCINOMA STAGE IV
     Dosage: 100 MILLIGRAM, EVERY 4 WEEKS
     Route: 041
     Dates: start: 20190731, end: 20191023
  4. KEYTRUDA [Suspect]
     Active Substance: PEMBROLIZUMAB
     Dosage: 200 MILLIGRAM, Q3W
     Route: 041
     Dates: start: 20200313, end: 20200605
  5. KEYTRUDA [Suspect]
     Active Substance: PEMBROLIZUMAB
     Dosage: 200 MILLIGRAM, Q3W
     Route: 041
     Dates: start: 20191120, end: 20200129
  6. KEYTRUDA [Suspect]
     Active Substance: PEMBROLIZUMAB
     Indication: LUNG ADENOCARCINOMA STAGE IV
     Dosage: 200 MILLIGRAM, EVERY 4 WEEKS
     Route: 041
     Dates: start: 20190731, end: 20191023
  7. PEMETREXED DISODIUM [Concomitant]
     Active Substance: PEMETREXED DISODIUM
     Dosage: 700 MILLIGRAM, A TIME/3?4 WEEKS
     Route: 041
     Dates: start: 20191120, end: 20200129

REACTIONS (12)
  - Altered state of consciousness [Recovered/Resolved]
  - Malignant neoplasm progression [Unknown]
  - Adrenal insufficiency [Unknown]
  - Hypothyroidism [Unknown]
  - Meningitis [Unknown]
  - Cortisol decreased [Unknown]
  - Immune-mediated encephalitis [Recovered/Resolved]
  - Myasthenia gravis [Unknown]
  - Interstitial lung disease [Recovering/Resolving]
  - Physical deconditioning [Unknown]
  - Asthenia [Recovering/Resolving]
  - Off label use [Unknown]

NARRATIVE: CASE EVENT DATE: 2019
